FAERS Safety Report 5570700-9 (Version None)
Quarter: 2007Q4

REPORT INFORMATION
  Report Type: 
  Country: None (occurrence: None)
  Receive Date: 20071221
  Receipt Date: 20071206
  Transmission Date: 20080405
  Serious: Yes (Other)
  Sender: FDA-Public Use
  Company Number: FR-JNJFOC-20051202321

PATIENT
  Age: 67 Year
  Sex: Female

DRUGS (3)
  1. INFLIXIMAB [Suspect]
     Indication: PUSTULAR PSORIASIS
     Dosage: WEEK 0, 2, 6 AND EVERY 8 WEEKS
     Route: 042
  2. METHOTREXATE [Concomitant]
     Indication: PUSTULAR PSORIASIS
  3. ETANERCEPT [Concomitant]
     Indication: PUSTULAR PSORIASIS

REACTIONS (4)
  - ANTINUCLEAR ANTIBODY POSITIVE [None]
  - ANTIPHOSPHOLIPID SYNDROME [None]
  - DNA ANTIBODY POSITIVE [None]
  - PUSTULAR PSORIASIS [None]
